FAERS Safety Report 17915739 (Version 2)
Quarter: 2020Q2

REPORT INFORMATION
  Report Type: Report from Study
  Country: IT (occurrence: IT)
  Receive Date: 20200619
  Receipt Date: 20200625
  Transmission Date: 20200714
  Serious: Yes (Death, Other)
  Sender: FDA-Public Use
  Company Number: IT-BRISTOL-MYERS SQUIBB COMPANY-BMS-2020-048386

PATIENT
  Age: 85 Year
  Sex: Female

DRUGS (1)
  1. APIXABAN [Suspect]
     Active Substance: APIXABAN
     Indication: PULMONARY EMBOLISM
     Dosage: 1 DOSAGE FORM, PER DAY
     Route: 048

REACTIONS (8)
  - Vomiting [Fatal]
  - Atrial fibrillation [Fatal]
  - Cerebral haemorrhage [Fatal]
  - Ischaemic stroke [Fatal]
  - Syncope [Fatal]
  - Hemiplegia [Fatal]
  - Acute respiratory failure [Fatal]
  - Off label use [Unknown]

NARRATIVE: CASE EVENT DATE: 20200426
